FAERS Safety Report 10220528 (Version 1)
Quarter: 2014Q2

REPORT INFORMATION
  Report Type: Spontaneous
  Country: US (occurrence: US)
  Receive Date: 20140606
  Receipt Date: 20140606
  Transmission Date: 20141212
  Serious: Yes (Hospitalization)
  Sender: FDA-Public Use
  Company Number: US-SHIRE-US201402661

PATIENT
  Age: 56 Year
  Sex: Male
  Weight: 86.17 kg

DRUGS (9)
  1. CINRYZE [Suspect]
     Indication: HEREDITARY ANGIOEDEMA
     Dosage: UNK UNK, OTHER (1,000U/EVERY THREE DAYS)
     Route: 042
     Dates: start: 2013
  2. CINRYZE [Suspect]
     Indication: PROPHYLAXIS
  3. JENTADUETO [Concomitant]
     Indication: DIABETES MELLITUS
     Dosage: UNK, UNKNOWN
     Route: 048
  4. PRAVASTATIN [Concomitant]
     Indication: BLOOD CHOLESTEROL ABNORMAL
     Dosage: 20 MG, 1X/DAY:QD
     Route: 048
  5. RANITIDINE [Concomitant]
     Indication: HEREDITARY ANGIOEDEMA
     Dosage: 250 MG, UNKNOWN
     Route: 048
  6. KALBITOR [Concomitant]
     Indication: HEREDITARY ANGIOEDEMA
     Dosage: 30 MG, AS REQ^D
     Route: 058
     Dates: start: 2011
  7. BENADRYL                           /00000402/ [Concomitant]
     Indication: PREMEDICATION
     Dosage: 50 MG, AS REQ^D
     Route: 042
  8. WARFARIN [Concomitant]
     Indication: ANTICOAGULANT THERAPY
     Dosage: 7.5 MG, OTHER (TUESDAY AND THURSDAY)
     Route: 065
  9. WARFARIN [Concomitant]
     Dosage: 10 MG, OTHER (THE REST OF THE DAYS, SUN., MON., WED., FRI., SAT. )
     Route: 065

REACTIONS (4)
  - Device related infection [Unknown]
  - Staphylococcal infection [Unknown]
  - Pyrexia [Unknown]
  - Sinusitis [Unknown]
